FAERS Safety Report 10213650 (Version 1)
Quarter: 2014Q2

REPORT INFORMATION
  Report Type: Spontaneous
  Country: SE (occurrence: None)
  Receive Date: 20140530
  Receipt Date: 20140530
  Transmission Date: 20141212
  Serious: Yes (Death)
  Sender: FDA-Public Use
  Company Number: 2014050087

PATIENT
  Age: 63 Year
  Sex: Male

DRUGS (8)
  1. TOREM [Suspect]
     Dosage: 1 IN 1 D
     Route: 048
  2. NOVALGIN (METAMIZOLE SODIUM) [Suspect]
     Indication: DIABETIC NEUROPATHY
     Dosage: 500 MG 3 IN 1 D
     Route: 048
     Dates: start: 20140430, end: 20140510
  3. PANTOZOL [Suspect]
     Dosage: 1 IN 1 D
     Route: 048
  4. XYZAL (LEVOTIRIZINE ) [Concomitant]
  5. TENORMIN (ATENOLOL) [Concomitant]
  6. CIPRALEX (ESCITALOPRAM OXALATE) [Concomitant]
  7. DUPHALAC (GALACTOSE , LACTULOSE, LACTOSE) [Concomitant]
  8. MAGNES IOCARD (MAGNESIUM ASPARTATE HYDRICHLORIDE) [Concomitant]

REACTIONS (3)
  - Agranulocytosis [None]
  - Blood creatinine increased [None]
  - Toxic shock syndrome streptococcal [None]
